FAERS Safety Report 20383334 (Version 1)
Quarter: 2022Q1

REPORT INFORMATION
  Report Type: Spontaneous
  Country: US (occurrence: US)
  Receive Date: 20220127
  Receipt Date: 20220127
  Transmission Date: 20220423
  Serious: No
  Sender: FDA-Public Use
  Company Number: US-NOVARTISTESTPH-NVSC2022US016965

PATIENT
  Sex: Male
  Weight: 24 kg

DRUGS (1)
  1. KYMRIAH [Suspect]
     Active Substance: TISAGENLECLEUCEL
     Indication: Acute lymphocytic leukaemia
     Dosage: ONE SINGLE DOSE, (3.7E6 CAR-T CELLS) (LAST DOSE RECIEVED ON 14-DEC-2021)
     Route: 042
     Dates: start: 20211214

REACTIONS (1)
  - Remission not achieved [Unknown]
